FAERS Safety Report 14675732 (Version 1)
Quarter: 2018Q1

REPORT INFORMATION
  Report Type: Spontaneous
  Country: IR (occurrence: IR)
  Receive Date: 20180323
  Receipt Date: 20180323
  Transmission Date: 20180509
  Serious: Yes (Hospitalization, Other)
  Sender: FDA-Public Use
  Company Number: IR-MYLANLABS-2018M1017796

PATIENT
  Age: 34 Year
  Sex: Female

DRUGS (1)
  1. CARBAMAZEPINE. [Suspect]
     Active Substance: CARBAMAZEPINE
     Indication: SEIZURE
     Dosage: UNK
     Route: 065

REACTIONS (4)
  - Right ventricular diastolic collapse [Unknown]
  - Systemic lupus erythematosus [Unknown]
  - Diastolic dysfunction [Unknown]
  - Pericardial effusion [Recovered/Resolved]
